FAERS Safety Report 25725286 (Version 2)
Quarter: 2025Q3

REPORT INFORMATION
  Report Type: Report from Study
  Country: US (occurrence: US)
  Receive Date: 20250826
  Receipt Date: 20250922
  Transmission Date: 20251021
  Serious: No
  Sender: SUNOVION
  Company Number: US-SUMITOMO PHARMA SWITZERLAND GMBH-2025SPA010669

PATIENT
  Age: 78 Year
  Sex: Male

DRUGS (38)
  1. ORGOVYX [Suspect]
     Active Substance: RELUGOLIX
     Indication: Prostate cancer
     Route: 048
     Dates: start: 20250814, end: 20250814
  2. ORGOVYX [Suspect]
     Active Substance: RELUGOLIX
     Route: 048
  3. AMLODIPINE [Concomitant]
     Active Substance: AMLODIPINE BESYLATE
  4. ARNUITY ELLIPTA [Concomitant]
     Active Substance: FLUTICASONE FUROATE
  5. ASPIRIN [Concomitant]
     Active Substance: ASPIRIN
  6. ATORVASTATIN [Concomitant]
     Active Substance: ATORVASTATIN
  7. AZITHROMYCIN [Concomitant]
     Active Substance: AZITHROMYCIN
  8. CLOTRIMAZOLE [Concomitant]
     Active Substance: CLOTRIMAZOLE
  9. ERYTHROMYCIN [Concomitant]
     Active Substance: ERYTHROMYCIN
     Route: 047
  10. SACCHAROMYCES CEREVISIAE [Concomitant]
     Active Substance: SACCHAROMYCES CEREVISIAE
  11. FLUOCINONIDE [Concomitant]
     Active Substance: FLUOCINONIDE
  12. FLUTICASONE [Concomitant]
     Active Substance: FLUTICASONE
     Route: 045
  13. HUMALOG [Concomitant]
     Active Substance: INSULIN LISPRO
  14. IRBESARTAN [Concomitant]
     Active Substance: IRBESARTAN
  15. KETOCONAZOLE [Concomitant]
     Active Substance: KETOCONAZOLE
  16. KETOTIFEN [Concomitant]
     Active Substance: KETOTIFEN
  17. LACTASE [Concomitant]
     Active Substance: LACTASE
  18. LANTUS [Concomitant]
     Active Substance: INSULIN GLARGINE
  19. LATANOPROST [Concomitant]
     Active Substance: LATANOPROST
  20. METOPROLOL [Concomitant]
     Active Substance: METOPROLOL
  21. METRONIDAZOLE [Concomitant]
     Active Substance: METRONIDAZOLE
  22. MUPIROCIN [Concomitant]
     Active Substance: MUPIROCIN
  23. OZEMPIC [Concomitant]
     Active Substance: SEMAGLUTIDE
  24. PANTOPRAZOLE [Concomitant]
     Active Substance: PANTOPRAZOLE
  25. POTASSIUM CITRATE [Concomitant]
     Active Substance: POTASSIUM CITRATE
  26. TAMSULOSIN [Concomitant]
     Active Substance: TAMSULOSIN
  27. ZADITOR [Concomitant]
     Active Substance: KETOTIFEN FUMARATE
     Route: 047
  28. HYDROCORTISONE [Concomitant]
     Active Substance: HYDROCORTISONE
  29. FLUOROURACIL [Concomitant]
     Active Substance: FLUOROURACIL
  30. KENALOG [Concomitant]
     Active Substance: TRIAMCINOLONE ACETONIDE
  31. METFORMIN HYDROCHLORIDE [Concomitant]
     Active Substance: METFORMIN HYDROCHLORIDE
  32. MOMETASONE FUROATE [Concomitant]
     Active Substance: MOMETASONE FUROATE
  33. MUCINEX [Concomitant]
     Active Substance: GUAIFENESIN
     Route: 048
  34. VITAMINS [Concomitant]
     Active Substance: VITAMINS
     Route: 048
  35. NEILMED SINUS RINSE [Concomitant]
     Active Substance: SODIUM BICARBONATE\SODIUM CHLORIDE
  36. REFRESH CLASSIC [Concomitant]
     Active Substance: POLYVINYL ALCOHOL\POVIDONE
  37. VITAMINS [Concomitant]
     Active Substance: VITAMINS
  38. VITAMIN D [Concomitant]
     Active Substance: VITAMIN D NOS

REACTIONS (2)
  - Fatigue [Unknown]
  - Blood glucose increased [Unknown]
